FAERS Safety Report 8470805-9 (Version None)
Quarter: 2012Q2

REPORT INFORMATION
  Report Type: 
  Country: None (occurrence: None)
  Receive Date: 20120627
  Receipt Date: 20120619
  Transmission Date: 20120825
  Serious: Yes (Other)
  Sender: FDA-Public Use
  Company Number: US-BRISTOL-MYERS SQUIBB COMPANY-16696759

PATIENT
  Age: 37 Year
  Sex: Female

DRUGS (1)
  1. ORENCIA [Suspect]
     Indication: RHEUMATOID ARTHRITIS
     Dosage: APPROXIMATELY 5-6 MONTHS AGO,DISC 5-6 MONTHS AGO
     Route: 042

REACTIONS (1)
  - SURGERY [None]
